FAERS Safety Report 20704257 (Version 2)
Quarter: 2022Q2

REPORT INFORMATION
  Report Type: Report from Study
  Country: US (occurrence: None)
  Receive Date: 20220413
  Receipt Date: 20220513
  Transmission Date: 20220721
  Serious: Yes (Hospitalization)
  Sender: FDA-Public Use
  Company Number: US-ROCHE-1961325

PATIENT
  Age: 58 Year
  Sex: Female
  Weight: 54.85 kg

DRUGS (3)
  1. BEVACIZUMAB [Suspect]
     Active Substance: BEVACIZUMAB
     Indication: Ovarian epithelial cancer
     Dosage: DATE OF MOST RECENT DOSE PRIOR TO SAE: 20/APR/2017?15MG/KGIVOVER30-90MINONDAY1OFCYCLE2
     Route: 042
     Dates: start: 20170420
  2. CARBOPLATIN [Suspect]
     Active Substance: CARBOPLATIN
     Indication: Ovarian epithelial cancer
     Dosage: DATE OF MOST RECENT DOSE PRIOR TO SAE: 20/APR/2017?AUC5IVOVER60MINONDAY1
     Route: 042
     Dates: start: 20170420
  3. PACLITAXEL [Suspect]
     Active Substance: PACLITAXEL
     Indication: Ovarian epithelial cancer
     Dosage: DATE OF MOST RECENT DOSE PRIOR TO SAE: 20/APR/2017?175MG/M2 IV OVER 3HRS ON DAY1
     Route: 042
     Dates: start: 20170420

REACTIONS (2)
  - Febrile neutropenia [Recovered/Resolved]
  - Neutrophil count decreased [Recovered/Resolved]

NARRATIVE: CASE EVENT DATE: 20170426
